FAERS Safety Report 16117816 (Version 2)
Quarter: 2019Q1

REPORT INFORMATION
  Report Type: Spontaneous
  Country: FR (occurrence: FR)
  Receive Date: 20190326
  Receipt Date: 20190329
  Transmission Date: 20190418
  Serious: Yes (Hospitalization, Other)
  Sender: FDA-Public Use
  Company Number: FR-PFIZER INC-2019126936

PATIENT
  Age: 60 Year
  Sex: Male

DRUGS (3)
  1. METHADONE [Concomitant]
     Active Substance: METHADONE HYDROCHLORIDE
     Dosage: 30 MG, 1X/DAY
  2. BROMAZEPAM [Concomitant]
     Active Substance: BROMAZEPAM
     Dosage: 40 MG, 1X/DAY
  3. VENLAFAXINE HCL [Suspect]
     Active Substance: VENLAFAXINE HYDROCHLORIDE
     Dosage: 3000 MG, 1X/DAY
     Route: 048

REACTIONS (5)
  - Drug abuse [Unknown]
  - Rhabdomyolysis [Unknown]
  - Intentional overdose [Unknown]
  - Prescription drug used without a prescription [Unknown]
  - Acute kidney injury [Unknown]
